FAERS Safety Report 14038118 (Version 1)
Quarter: 2017Q4

REPORT INFORMATION
  Report Type: Report from Study
  Country: None (occurrence: AU)
  Receive Date: 20171004
  Receipt Date: 20171004
  Transmission Date: 20180321
  Serious: Yes (Hospitalization, Other)
  Sender: FDA-Public Use
  Company Number: AU-ABBVIE-17K-008-2052778-00

PATIENT
  Age: 17 Year
  Sex: Female
  Weight: 70 kg

DRUGS (3)
  1. HUMIRA [Suspect]
     Active Substance: ADALIMUMAB
     Route: 058
     Dates: start: 20170902
  2. HUMIRA [Suspect]
     Active Substance: ADALIMUMAB
     Indication: CROHN^S DISEASE
     Route: 058
     Dates: start: 201707, end: 20170710
  3. MESALAZINE [Concomitant]
     Active Substance: MESALAMINE
     Indication: PRODUCT USED FOR UNKNOWN INDICATION

REACTIONS (22)
  - Pyrexia [Unknown]
  - Pyrexia [Unknown]
  - Tachycardia [Unknown]
  - Intestinal mucosal hypertrophy [Unknown]
  - C-reactive protein increased [Not Recovered/Not Resolved]
  - Gamma-glutamyltransferase increased [Not Recovered/Not Resolved]
  - Platelet count increased [Not Recovered/Not Resolved]
  - Computerised tomogram abnormal [Unknown]
  - Globulins increased [Not Recovered/Not Resolved]
  - White blood cell count increased [Not Recovered/Not Resolved]
  - Neutrophil count increased [Not Recovered/Not Resolved]
  - Hepatic vascular thrombosis [Unknown]
  - Protein total increased [Not Recovered/Not Resolved]
  - Ultrasound abdomen abnormal [Unknown]
  - Splenomegaly [Unknown]
  - Liver abscess [Recovered/Resolved]
  - Crohn^s disease [Unknown]
  - Hepatic lesion [Recovered/Resolved]
  - Lethargy [Unknown]
  - Gastrointestinal oedema [Unknown]
  - Mean platelet volume decreased [Not Recovered/Not Resolved]
  - Eosinophil count decreased [Not Recovered/Not Resolved]

NARRATIVE: CASE EVENT DATE: 2017
